FAERS Safety Report 9164003 (Version 1)
Quarter: 2012Q4

REPORT INFORMATION
  Report Type: 
  Country: US (occurrence: US)
  Receive Date: 20121127
  Receipt Date: 20121127
  Transmission Date: 20130627
  Serious: Yes (Other)
  Sender: FDA-Public Use
  Company Number: US-RB-047039-12

PATIENT
  Sex: Male

DRUGS (1)
  1. SUBOXONE FILM [Suspect]
     Indication: DRUG DEPENDENCE
     Dosage: Suboxone film; tapered doses to 4 mg
     Route: 060
     Dates: start: 2012, end: 20121112

REACTIONS (3)
  - Wrong technique in drug usage process [Recovered/Resolved]
  - Compression fracture [Recovered/Resolved]
  - Pain [Not Recovered/Not Resolved]
